FAERS Safety Report 17907772 (Version 1)
Quarter: 2020Q2

REPORT INFORMATION
  Report Type: Spontaneous
  Country: GB (occurrence: GB)
  Receive Date: 20200617
  Receipt Date: 20200617
  Transmission Date: 20200714
  Serious: Yes (Hospitalization)
  Sender: FDA-Public Use
  Company Number: GB-TEVA-2020-GB-1503691

PATIENT
  Age: 78 Year

DRUGS (11)
  1. CARBOCISTEINE [Concomitant]
     Active Substance: CARBOCYSTEINE
     Dosage: 2250 MG
  2. ALFACALCIDOL [Concomitant]
     Active Substance: ALFACALCIDOL
     Indication: DIALYSIS
     Dosage: 250 NANOGRAM DAILY; IN MORNING
  3. DIAFER [Concomitant]
     Indication: DIALYSIS
     Dosage: 200 MG
  4. NOVOMIX [Concomitant]
     Active Substance: INSULIN ASPART
     Dosage: 14 IU (INTERNATIONAL UNIT) DAILY; IN MORNING, 100UNITS/ML, 3ML PRE-FILLED
     Route: 058
  5. FUROSEMIDE. [Concomitant]
     Active Substance: FUROSEMIDE
     Indication: DIALYSIS
     Dosage: 160 MG
  6. RENAVIT [Concomitant]
     Indication: DIALYSIS
     Dosage: 1 DOSAGE FORMS
  7. RANITIDINE. [Concomitant]
     Active Substance: RANITIDINE
     Dosage: 300 MG
  8. BISOPROLOL [Concomitant]
     Active Substance: BISOPROLOL
     Dosage: 5 MILLIGRAM DAILY; IN MORNING
  9. WARFARIN [Suspect]
     Active Substance: WARFARIN
     Indication: ATRIAL FIBRILLATION
     Dosage: 5MG MONDAY AND FRIDAY, 6MG REST OF THE WEEK. TARGET INR 2-3
     Route: 065
  10. ARANESP [Concomitant]
     Active Substance: DARBEPOETIN ALFA
     Indication: DIALYSIS
     Dosage: 50 MICROGRAM
  11. DIGOXIN. [Concomitant]
     Active Substance: DIGOXIN
     Dosage: 125 MICROGRAM DAILY; IN MORNING

REACTIONS (5)
  - Pyrexia [Unknown]
  - Productive cough [Unknown]
  - Dyspnoea [Unknown]
  - Haemoptysis [Recovered/Resolved]
  - Epistaxis [Recovered/Resolved]
